FAERS Safety Report 9999325 (Version 1)
Quarter: 2014Q1

REPORT INFORMATION
  Report Type: Report from Study
  Country: US (occurrence: US)
  Receive Date: 20140312
  Receipt Date: 20140312
  Transmission Date: 20141002
  Serious: Yes (Hospitalization, Other)
  Sender: FDA-Public Use
  Company Number: US-TEVA-468319USA

PATIENT
  Age: 58 Year
  Sex: Female

DRUGS (2)
  1. COPAXONE [Suspect]
     Indication: MULTIPLE SCLEROSIS
     Dates: start: 20020214
  2. BACLOFEN [Suspect]

REACTIONS (3)
  - Loss of consciousness [Unknown]
  - Rhabdomyolysis [Unknown]
  - Overdose [Unknown]
